FAERS Safety Report 16644829 (Version 1)
Quarter: 2019Q3

REPORT INFORMATION
  Report Type: Spontaneous
  Country: US (occurrence: US)
  Receive Date: 20190729
  Receipt Date: 20190729
  Transmission Date: 20191004
  Serious: No
  Sender: FDA-Public Use
  Company Number: US-HORIZON-PEN-0700-2019

PATIENT
  Age: 59 Year
  Sex: Male

DRUGS (4)
  1. LIPITOR [Concomitant]
     Active Substance: ATORVASTATIN CALCIUM
  2. GABAPENTIN. [Concomitant]
     Active Substance: GABAPENTIN
  3. DUEXIS [Concomitant]
     Active Substance: FAMOTIDINE\IBUPROFEN
     Dosage: 1 TABLET EVERY DAY AS NEEDED
     Dates: start: 20190702
  4. PENNSAID [Suspect]
     Active Substance: DICLOFENAC SODIUM
     Indication: INTERVERTEBRAL DISC DEGENERATION
     Dosage: 1-2 PUMPS TO THE AFFECTED AREA TWICE DAILY
     Dates: start: 201906, end: 201906

REACTIONS (4)
  - Musculoskeletal stiffness [Unknown]
  - Drug ineffective for unapproved indication [Unknown]
  - Off label use [Unknown]
  - Dry skin [Unknown]

NARRATIVE: CASE EVENT DATE: 201906
